FAERS Safety Report 15420152 (Version 1)
Quarter: 2018Q3

REPORT INFORMATION
  Report Type: Spontaneous
  Country: GB (occurrence: GB)
  Receive Date: 20180924
  Receipt Date: 20180924
  Transmission Date: 20181010
  Serious: Yes (Disabling)
  Sender: FDA-Public Use
  Company Number: GB-TEVA-2018-GB-957860

PATIENT
  Age: 60 Year
  Sex: Male
  Weight: 115 kg

DRUGS (20)
  1. PLAVIX [Concomitant]
     Active Substance: CLOPIDOGREL BISULFATE
  2. DOMPERIDONE [Concomitant]
     Active Substance: DOMPERIDONE
  3. KEPPRA [Concomitant]
     Active Substance: LEVETIRACETAM
  4. PARACETAMOL [Concomitant]
     Active Substance: ACETAMINOPHEN
  5. SYMBICORT [Concomitant]
     Active Substance: BUDESONIDE\FORMOTEROL FUMARATE DIHYDRATE
     Dosage: 200/6 TURBOHALER
     Route: 065
  6. TERBUTALINE [Concomitant]
     Active Substance: TERBUTALINE
     Dosage: DRY POWDER INHALER
  7. DOXAZOSIN [Suspect]
     Active Substance: DOXAZOSIN\DOXAZOSIN MESYLATE
     Indication: HYPERTENSION
     Dosage: 16 MILLIGRAM DAILY;
     Route: 048
     Dates: start: 20130101, end: 20180824
  8. GLUCOSE [Concomitant]
     Active Substance: DEXTROSE
  9. LANSOPRAZOLE. [Concomitant]
     Active Substance: LANSOPRAZOLE
  10. ATENOLOL. [Concomitant]
     Active Substance: ATENOLOL
  11. NEURONTIN [Concomitant]
     Active Substance: GABAPENTIN
  12. LERCANIDIPINE [Concomitant]
     Active Substance: LERCANIDIPINE
  13. METHYLDOPA. [Concomitant]
     Active Substance: METHYLDOPA
  14. HUMULIN M3 [Concomitant]
     Active Substance: INSULIN HUMAN
     Dosage: 100UNITS/ML SUSPENSION FOR INJECTION 3ML PRE?FILLED
  15. INDAPAMIDE. [Concomitant]
     Active Substance: INDAPAMIDE
  16. ATORVASTATIN [Concomitant]
     Active Substance: ATORVASTATIN
  17. METFORMIN [Concomitant]
     Active Substance: METFORMIN HYDROCHLORIDE
  18. CODEINE [Concomitant]
     Active Substance: CODEINE
  19. NEOCLARITYN [Concomitant]
     Active Substance: DESLORATADINE
  20. FLUTICASONE FUROATE [Concomitant]
     Active Substance: FLUTICASONE FUROATE

REACTIONS (1)
  - Generalised tonic-clonic seizure [Not Recovered/Not Resolved]

NARRATIVE: CASE EVENT DATE: 20180820
